FAERS Safety Report 5938433-4 (Version None)
Quarter: 2008Q4

REPORT INFORMATION
  Report Type: 
  Country: None (occurrence: None)
  Receive Date: 20081103
  Receipt Date: 20081023
  Transmission Date: 20090506
  Serious: Yes (Hospitalization, Other)
  Sender: FDA-Public Use
  Company Number: BR-ROCHE-584907

PATIENT
  Age: 75 Year
  Sex: Female
  Weight: 39 kg

DRUGS (9)
  1. BONIVA [Suspect]
     Indication: OSTEOPOROSIS
     Route: 048
     Dates: start: 20060801
  2. ROCALTROL [Suspect]
     Indication: OSTEOPOROSIS
     Route: 048
     Dates: start: 20080501, end: 20080801
  3. SERTRALINE [Concomitant]
     Indication: DEPRESSION
     Route: 048
  4. NOVALGINA [Concomitant]
     Indication: PAIN
  5. OMEPRAZOLE [Concomitant]
     Indication: PROPHYLAXIS
     Route: 048
  6. RIVOTRIL [Concomitant]
     Route: 048
     Dates: start: 20020101
  7. EXELON [Concomitant]
     Route: 048
  8. ONDANSETRON [Concomitant]
     Indication: NAUSEA
     Dosage: DRUG: ONDANSETRONE/VONAU
  9. VYTORIN [Concomitant]

REACTIONS (14)
  - ANAEMIA [None]
  - BONE PAIN [None]
  - DIARRHOEA [None]
  - FALL [None]
  - HYPERPARATHYROIDISM [None]
  - HYPOVITAMINOSIS [None]
  - LABYRINTHITIS [None]
  - LACTOSE INTOLERANCE [None]
  - MALNUTRITION [None]
  - MULTIPLE FRACTURES [None]
  - NEPHROLITHIASIS [None]
  - PNEUMONIA [None]
  - TREMOR [None]
  - VERTEBRAL INJURY [None]
